FAERS Safety Report 10081321 (Version 1)
Quarter: 2014Q2

REPORT INFORMATION
  Report Type: Report from Study
  Country: CA (occurrence: CA)
  Receive Date: 20140416
  Receipt Date: 20140416
  Transmission Date: 20141212
  Serious: Yes (Hospitalization)
  Sender: FDA-Public Use
  Company Number: CA-JNJFOC-20140408560

PATIENT
  Age: 59 Year
  Sex: Female
  Weight: 45 kg

DRUGS (4)
  1. REMICADE [Suspect]
     Indication: CROHN^S DISEASE
     Route: 042
     Dates: start: 20140409
  2. REMICADE [Suspect]
     Indication: CROHN^S DISEASE
     Dosage: ALSO REPORTED AS 10 MG/KG
     Route: 042
     Dates: start: 20110823
  3. BENADRYL [Concomitant]
     Indication: PREMEDICATION
     Route: 042
  4. SOLUCORTEF [Concomitant]
     Indication: PREMEDICATION
     Route: 042

REACTIONS (8)
  - Dizziness [Not Recovered/Not Resolved]
  - Infusion related reaction [Not Recovered/Not Resolved]
  - Pain [Unknown]
  - Nausea [Not Recovered/Not Resolved]
  - Eructation [Unknown]
  - Blood pressure increased [Unknown]
  - Abdominal pain [Unknown]
  - Aphagia [Unknown]
